FAERS Safety Report 7552478-2 (Version None)
Quarter: 2011Q2

REPORT INFORMATION
  Report Type: 
  Country: None (occurrence: None)
  Receive Date: 20110616
  Receipt Date: 20110610
  Transmission Date: 20111010
  Serious: Yes (Other)
  Sender: FDA-Public Use
  Company Number: JP-B.I. PHARMACEUTICALS,INC./RIDGEFIELD-2011-BP-13502NB

PATIENT
  Sex: Female
  Weight: 47 kg

DRUGS (8)
  1. FUROSEMIDE [Concomitant]
     Route: 065
  2. UNKNOWNDRUG/UNKNOWN DRUG [Concomitant]
     Route: 065
  3. TROXSIN/TROXIPIDE [Concomitant]
     Route: 065
  4. PRADAXA [Suspect]
     Indication: CARDIAC FAILURE CHRONIC
     Dosage: 150 MG
     Route: 048
  5. PIROLACTON/SPIRONOLACTONE [Concomitant]
     Route: 065
  6. MAGMITT/MAGNESIUM OXIDE [Concomitant]
     Route: 065
  7. MUCOSTA [Concomitant]
     Route: 065
  8. LIPITOR [Concomitant]
     Route: 065

REACTIONS (3)
  - COAGULATION TIME PROLONGED [None]
  - RENAL FAILURE [None]
  - DEHYDRATION [None]
